FAERS Safety Report 6290651-4 (Version None)
Quarter: 2009Q3

REPORT INFORMATION
  Report Type: 
  Country: None (occurrence: None)
  Receive Date: 20090730
  Receipt Date: 20090716
  Transmission Date: 20100115
  Serious: Yes (Other)
  Sender: FDA-Public Use
  Company Number: PHHY2009BR29213

PATIENT
  Sex: Female
  Weight: 70 kg

DRUGS (7)
  1. ZADITEN [Suspect]
     Indication: DERMATITIS ALLERGIC
     Dosage: 2 MG, 1 TABLET AT NIGHT
     Route: 048
     Dates: start: 20090710
  2. LOVAZA [Concomitant]
     Indication: OSTEOARTHRITIS
     Dosage: 4 CAPSULES DAILY
     Route: 048
     Dates: start: 20090710
  3. ACECLOFENAC [Concomitant]
     Indication: OSTEOARTHRITIS
     Dosage: 100 MG, UNK
     Dates: start: 20050701
  4. NIMESULIDE [Concomitant]
     Indication: OSTEOARTHRITIS
     Dosage: 100 MG, UNK
  5. FAMOTIDINE [Concomitant]
     Indication: OSTEOARTHRITIS
     Dosage: 20 MG, UNK
  6. SERTRALINE [Concomitant]
     Indication: OSTEOARTHRITIS
     Dosage: 50 MG, UNK
     Dates: start: 20050701
  7. LOSARTAN POTASSIUM AND HYDROCHLOROTHIAZIDE [Concomitant]
     Indication: HYPERTENSION
     Dosage: 1 CAPSULE DAILY
     Route: 048

REACTIONS (10)
  - ARTHRALGIA [None]
  - ARTHROPATHY [None]
  - ASTHENIA [None]
  - BALANCE DISORDER [None]
  - BLOOD PRESSURE INCREASED [None]
  - FEELING DRUNK [None]
  - HEADACHE [None]
  - OSTEOARTHRITIS [None]
  - SEDATION [None]
  - SOMNOLENCE [None]
